FAERS Safety Report 24805999 (Version 1)
Quarter: 2025Q1

REPORT INFORMATION
  Report Type: Spontaneous
  Country: US (occurrence: US)
  Receive Date: 20250103
  Receipt Date: 20250103
  Transmission Date: 20250408
  Serious: No
  Sender: PFIZER
  Company Number: US-PFIZER INC-202500000267

PATIENT
  Age: 74 Year
  Sex: Female

DRUGS (7)
  1. IBRANCE [Suspect]
     Active Substance: PALBOCICLIB
     Route: 048
     Dates: start: 20241001
  2. CALCIUM [Concomitant]
     Active Substance: CALCIUM
  3. COENZYME Q10 [Concomitant]
     Active Substance: DIETARY SUPPLEMENT\UBIDECARENONE
  4. FULVESTRANT [Concomitant]
     Active Substance: FULVESTRANT
  5. ONDANSETRON [Concomitant]
     Active Substance: ONDANSETRON
  6. VITAMIN D3 [Concomitant]
     Active Substance: CHOLECALCIFEROL
  7. XGEVA [Concomitant]
     Active Substance: DENOSUMAB

REACTIONS (2)
  - Dizziness [Recovering/Resolving]
  - Nausea [Recovering/Resolving]

NARRATIVE: CASE EVENT DATE: 20240101
